FAERS Safety Report 21669028 (Version 2)
Quarter: 2022Q4

REPORT INFORMATION
  Report Type: Spontaneous
  Country: DK (occurrence: DK)
  Receive Date: 20221201
  Receipt Date: 20221205
  Transmission Date: 20230113
  Serious: Yes (Death, Hospitalization, Other)
  Sender: FDA-Public Use
  Company Number: None

PATIENT
  Age: 10 Year
  Sex: Female

DRUGS (2)
  1. DOXORUBICIN [Suspect]
     Active Substance: DOXORUBICIN
     Indication: Osteosarcoma
     Dosage: STRENGTH: UNKNOWN. DOSAGE: UNKNOWN
     Route: 065
     Dates: start: 20210610, end: 20220307
  2. CISPLATIN [Suspect]
     Active Substance: CISPLATIN
     Indication: Osteosarcoma
     Dosage: DOSAGE: UNKNOWN.STRENGTH: 1 MG/ML
     Route: 065
     Dates: start: 20210610, end: 20220307

REACTIONS (13)
  - Tumour lysis syndrome [Fatal]
  - Malaise [Fatal]
  - Haematemesis [Fatal]
  - Acute myeloid leukaemia [Fatal]
  - Increased tendency to bruise [Fatal]
  - Multiple organ dysfunction syndrome [Fatal]
  - Incorrect drug administration rate [Fatal]
  - Tinnitus [Fatal]
  - Liver injury [Fatal]
  - Skin haemorrhage [Fatal]
  - Haematochezia [Fatal]
  - Inappropriate schedule of product administration [Fatal]
  - Hypoacusis [Fatal]

NARRATIVE: CASE EVENT DATE: 20210920
